FAERS Safety Report 4562723-3 (Version None)
Quarter: 2005Q1

REPORT INFORMATION
  Report Type: 
  Country: None (occurrence: None)
  Receive Date: 20050121
  Receipt Date: 20050105
  Transmission Date: 20050727
  Serious: Yes (Hospitalization)
  Sender: FDA-Public Use
  Company Number: FR_050105541

PATIENT
  Age: 0 Month
  Sex: Male
  Weight: 2.42 kg

DRUGS (5)
  1. ZYPREXA [Suspect]
     Route: 064
     Dates: start: 20031223, end: 20040801
  2. MEPRONIZINE [Concomitant]
  3. LYSANXIA (PRAZEPAM) [Concomitant]
  4. EFFEXOR [Concomitant]
  5. AOTAL                     (ACAMPROSATE) [Concomitant]

REACTIONS (3)
  - DRUG EXPOSURE DURING PREGNANCY [None]
  - HYPOSPADIAS [None]
  - HYPOTONIA NEONATAL [None]
